FAERS Safety Report 7960372-8 (Version None)
Quarter: 2011Q4

REPORT INFORMATION
  Report Type: 
  Country: None (occurrence: None)
  Receive Date: 20111206
  Receipt Date: 20111026
  Transmission Date: 20120403
  Serious: Yes (Life-Threatening, Hospitalization, Disabling)
  Sender: FDA-Public Use
  Company Number: US-ROCHE-GNE231989

PATIENT
  Sex: Female
  Weight: 150.18 kg

DRUGS (24)
  1. PULMICORT [Concomitant]
     Indication: PRODUCT USED FOR UNKNOWN INDICATION
     Dosage: 200 PUFF, UNK, DOSE=200 PUFF
     Dates: start: 20060926
  2. MOTRIN [Concomitant]
     Indication: PRODUCT USED FOR UNKNOWN INDICATION
     Dosage: 800 MG, TID
     Route: 048
  3. OMALIZUMAB [Suspect]
     Dates: start: 20060810
  4. OMALIZUMAB [Suspect]
     Dates: start: 20070220
  5. ALBUTEROL INHALER [Concomitant]
     Indication: ASTHMA
     Dosage: 90 PUFF, UNK, DOSE=90 PUFF
     Dates: start: 20040101
  6. CLARITIN [Concomitant]
     Indication: PRODUCT USED FOR UNKNOWN INDICATION
  7. ASMANEX TWISTHALER [Concomitant]
     Indication: PRODUCT USED FOR UNKNOWN INDICATION
  8. CHROMAGEN [Concomitant]
     Indication: PRODUCT USED FOR UNKNOWN INDICATION
     Dosage: UNK, QD
     Route: 048
  9. ALBUTEROL [Concomitant]
     Indication: ASTHMA
  10. VICODIN [Concomitant]
     Indication: PRODUCT USED FOR UNKNOWN INDICATION
     Dosage: UNK, PRN
     Route: 048
  11. OMALIZUMAB [Suspect]
     Dates: start: 20061207
  12. CLARINEX [Concomitant]
     Indication: PRODUCT USED FOR UNKNOWN INDICATION
  13. SPIRIVA [Concomitant]
     Indication: PRODUCT USED FOR UNKNOWN INDICATION
  14. FLAGYL [Concomitant]
     Indication: SEXUALLY TRANSMITTED DISEASE
     Dosage: 2 G, UNK
     Route: 048
     Dates: start: 20070404
  15. OMALIZUMAB [Suspect]
     Indication: ASTHMA
     Dosage: 375 UNK, Q2W
     Route: 058
     Dates: start: 20050126
  16. PREVACID [Concomitant]
     Indication: GASTROOESOPHAGEAL REFLUX DISEASE
     Dosage: 30 MG, UNK
     Dates: start: 20040101
  17. ADVAIR DISKUS 100/50 [Concomitant]
     Indication: PRODUCT USED FOR UNKNOWN INDICATION
     Dosage: UNK, UNK
  18. SINGULAIR [Concomitant]
     Indication: PRODUCT USED FOR UNKNOWN INDICATION
  19. QVAR 40 [Concomitant]
     Indication: ASTHMA
  20. KEFLEX [Concomitant]
     Indication: CYSTITIS
     Dosage: 500 MG, UNK
     Route: 048
     Dates: start: 20070404
  21. OMALIZUMAB [Suspect]
     Dates: start: 20060711
  22. OMALIZUMAB [Suspect]
     Dates: start: 20080101
  23. RHINOCORT [Concomitant]
     Indication: PRODUCT USED FOR UNKNOWN INDICATION
  24. VITAMIN AND MINERAL PRENATAL SUPPLEMENT W/ FOLIC ACID CAP [Concomitant]
     Indication: PREGNANCY
     Route: 048

REACTIONS (4)
  - MATERNAL EXPOSURE DURING PREGNANCY [None]
  - ASTHMA [None]
  - PRE-ECLAMPSIA [None]
  - CAESAREAN SECTION [None]
